FAERS Safety Report 12772380 (Version 1)
Quarter: 2016Q3

REPORT INFORMATION
  Report Type: Spontaneous
  Country: US (occurrence: US)
  Receive Date: 20160922
  Receipt Date: 20160922
  Transmission Date: 20161109
  Serious: Yes (Other)
  Sender: FDA-Public Use
  Company Number: US-PFIZER INC-2016440011

PATIENT
  Age: 21 Year
  Sex: Female
  Weight: 113 kg

DRUGS (1)
  1. LABETALOL HYDROCHLORIDE. [Suspect]
     Active Substance: LABETALOL HYDROCHLORIDE
     Indication: GESTATIONAL HYPERTENSION
     Dosage: UNK

REACTIONS (4)
  - Dizziness [Recovered/Resolved]
  - Anaphylactoid syndrome of pregnancy [Recovered/Resolved]
  - Cyanosis [Recovered/Resolved]
  - Hypoxia [Recovered/Resolved]
